FAERS Safety Report 6529224-4 (Version None)
Quarter: 2010Q1

REPORT INFORMATION
  Report Type: 
  Country: None (occurrence: None)
  Receive Date: 20100107
  Receipt Date: 20091228
  Transmission Date: 20100710
  Serious: Yes (Hospitalization)
  Sender: FDA-Public Use
  Company Number: US-ROCHE-668923

PATIENT
  Sex: Male
  Weight: 81.6 kg

DRUGS (3)
  1. PEGASYS [Suspect]
     Indication: HEPATITIS C
     Route: 058
     Dates: start: 20090508, end: 20091113
  2. CELEXA [Concomitant]
     Indication: DEPRESSION
     Dosage: OTHER INDICATION: MOOD DYSFUNCTION
     Route: 048
     Dates: start: 20090801, end: 20091101
  3. TYLENOL (CAPLET) [Concomitant]
     Dosage: TAKEN WHEN NEEDED, HEPATITIS RELATED SIDE EFFECTS
     Route: 048
     Dates: start: 20090501

REACTIONS (5)
  - CONVULSION [None]
  - FALL [None]
  - FEELING HOT [None]
  - HEAD INJURY [None]
  - LOSS OF CONSCIOUSNESS [None]
